FAERS Safety Report 8001413 (Version 2)
Quarter: 2012Q4

REPORT INFORMATION
  Report Type: 
  Country: IT (occurrence: IT)
  Receive Date: 20110622
  Receipt Date: 20121004
  Transmission Date: 20130627
  Serious: Yes (Hospitalization)
  Sender: FDA-Public Use
  Company Number: IT-ELI_LILLY_AND_COMPANY-IT201106004093

PATIENT
  Age: 76 Year
  Sex: Male

DRUGS (1)
  1. ALIMTA [Suspect]
     Indication: LUNG ADENOCARCINOMA
     Dosage: 750 UNK, unknown
     Route: 042
     Dates: start: 20100603, end: 20100726

REACTIONS (6)
  - Hypotension [Recovered/Resolved]
  - Hyponatraemia [Recovered/Resolved]
  - Hypokalaemia [Recovered/Resolved]
  - Rales [Unknown]
  - Escherichia urinary tract infection [Unknown]
  - Normochromic normocytic anaemia [Unknown]
